FAERS Safety Report 6483158-2 (Version None)
Quarter: 2009Q4

REPORT INFORMATION
  Report Type: 
  Country: None (occurrence: None)
  Receive Date: 20091208
  Receipt Date: 20091208
  Transmission Date: 20100525
  Serious: Yes (Hospitalization)
  Sender: FDA-Public Use
  Company Number: None

PATIENT
  Age: 73 Year
  Sex: Male
  Weight: 73.5 kg

DRUGS (2)
  1. GEMFIBROZIL [Suspect]
     Indication: HYPERLIPIDAEMIA
     Dosage: 600 MG BID PO
     Route: 048
     Dates: start: 20050915, end: 20090106
  2. SIMVASTATIN [Suspect]
     Indication: PAIN
     Dosage: 80 MG HS PO
     Route: 048
     Dates: start: 20050915, end: 20090106

REACTIONS (3)
  - BLOOD CREATININE INCREASED [None]
  - LIVER FUNCTION TEST ABNORMAL [None]
  - RHABDOMYOLYSIS [None]
